FAERS Safety Report 5531844-0 (Version None)
Quarter: 2007Q4

REPORT INFORMATION
  Report Type: 
  Country: None (occurrence: None)
  Receive Date: 20071120
  Receipt Date: 20070801
  Transmission Date: 20080405
  Serious: No
  Sender: FDA-Public Use
  Company Number: WAES 0708USA00513

PATIENT
  Age: 45 Year
  Sex: Female

DRUGS (3)
  1. JANUVIA [Suspect]
     Indication: DIABETES MELLITUS
     Dosage: 100 MG/DAILY/PO
     Route: 048
     Dates: start: 20070630, end: 20070725
  2. LANTUS [Concomitant]
  3. ZOCOR [Concomitant]

REACTIONS (1)
  - OEDEMA PERIPHERAL [None]
